FAERS Safety Report 10182123 (Version 2)
Quarter: 2014Q2

REPORT INFORMATION
  Report Type: Spontaneous
  Country: JP (occurrence: JP)
  Receive Date: 20140520
  Receipt Date: 20140520
  Transmission Date: 20141212
  Serious: Yes (Other)
  Sender: FDA-Public Use
  Company Number: JP-AMGEN INC.-JPNSP2013078809

PATIENT
  Age: 66 Year
  Sex: Male
  Weight: 71 kg

DRUGS (3)
  1. ENBREL [Suspect]
     Indication: RHEUMATOID ARTHRITIS
     Dosage: 50 MG, WEEKLY
     Route: 058
     Dates: start: 2005, end: 201306
  2. METHOTREXATE [Concomitant]
     Dosage: UNK
  3. MESALAZINE [Concomitant]
     Dosage: UNK

REACTIONS (1)
  - Organising pneumonia [Recovered/Resolved]
